FAERS Safety Report 17067146 (Version 2)
Quarter: 2019Q4

REPORT INFORMATION
  Report Type: Report from Study
  Country: US (occurrence: US)
  Receive Date: 20191122
  Receipt Date: 20191122
  Transmission Date: 20200122
  Serious: Yes (Other)
  Sender: FDA-Public Use
  Company Number: US-PFIZER INC-2019497289

PATIENT

DRUGS (2)
  1. AZTREONAM. [Suspect]
     Active Substance: AZTREONAM
     Indication: SKIN BACTERIAL INFECTION
     Dosage: 2 G, 2X/DAY (ON AN INPATIENT OR OUTPATIENT BASIS)
  2. VANCOMYCIN HCL [Suspect]
     Active Substance: VANCOMYCIN HYDROCHLORIDE
     Indication: SKIN BACTERIAL INFECTION
     Dosage: 15 MG/KG, UNK (ACTUAL BODY WEIGHT; ON AN INPATIENT OR OUTPATIENT BASIS)
     Route: 042

REACTIONS (1)
  - Renal failure [Unknown]
